FAERS Safety Report 9522527 (Version 1)
Quarter: 2013Q1

REPORT INFORMATION
  Report Type: Spontaneous
  Country: US (occurrence: None)
  Receive Date: 20130305
  Receipt Date: 20130305
  Transmission Date: 20140127
  Serious: Yes (Life-Threatening)
  Sender: FDA-Public Use
  Company Number: 163-21880-12063708

PATIENT
  Age: 76 Year
  Sex: Female
  Weight: 92.99 kg

DRUGS (1)
  1. REVLIMID [Suspect]
     Indication: PLASMA CELL MYELOMA
     Dosage: 20 MG, QD X 3 WEEKS, 1 WEEK
     Dates: start: 20120413, end: 20120621

REACTIONS (2)
  - Pulmonary thrombosis [None]
  - Thrombosis [None]
